FAERS Safety Report 12399157 (Version 1)
Quarter: 2016Q2

REPORT INFORMATION
  Report Type: Other
  Country: GB (occurrence: GB)
  Receive Date: 20160524
  Receipt Date: 20160524
  Transmission Date: 20160815
  Serious: Yes (Life-Threatening, Hospitalization)
  Sender: FDA-Public Use
  Company Number: GB-MYLANLABS-2016M1020602

PATIENT

DRUGS (6)
  1. OXYBUTYNIN [Concomitant]
     Active Substance: OXYBUTYNIN
     Dosage: 5 MG, QD (IN THE MORNING.)
     Route: 048
     Dates: end: 20160114
  2. QUETIAPINE. [Suspect]
     Active Substance: QUETIAPINE
     Indication: BIPOLAR DISORDER
     Dosage: 225 MG, QD (NOCTE)
     Route: 048
     Dates: start: 20151001, end: 20160114
  3. ANTICHOLINERGICS [Suspect]
     Active Substance: UNSPECIFIED INGREDIENT
     Dosage: LOW DOSES.
  4. LOESTRIN NOS [Concomitant]
     Active Substance: ETHINYL ESTRADIOL\NORETHINDRONE ACETATE
     Dosage: 1 DF, QD
     Route: 048
  5. SIMVASTATIN. [Concomitant]
     Active Substance: SIMVASTATIN
     Dosage: AT NIGHT.
     Route: 048
     Dates: end: 20160114
  6. AMITRIPTYLINE [Concomitant]
     Active Substance: AMITRIPTYLINE
     Indication: DEPRESSION
     Dosage: 50 MG, QD (AT NIGHT.)
     Route: 048
     Dates: end: 20160114

REACTIONS (2)
  - Acute abdomen [Recovered/Resolved with Sequelae]
  - Intestinal ischaemia [Recovered/Resolved with Sequelae]

NARRATIVE: CASE EVENT DATE: 20160114
